FAERS Safety Report 8036536-4 (Version None)
Quarter: 2012Q1

REPORT INFORMATION
  Report Type: 
  Country: None (occurrence: None)
  Receive Date: 20120109
  Receipt Date: 20111025
  Transmission Date: 20120608
  Serious: Yes (Hospitalization)
  Sender: FDA-Public Use
  Company Number: IT-SEPTODONT-201100222

PATIENT
  Age: 16 Year
  Sex: Male

DRUGS (1)
  1. ARTICAINE HYDROCHLORIDE WITH EPINEPHRINE [Suspect]
     Indication: LOCAL ANAESTHESIA
     Dosage: 1 CARTRIDGE DENTAL
     Route: 004
     Dates: start: 20050922

REACTIONS (5)
  - BRADYCARDIA [None]
  - INCORRECT ROUTE OF DRUG ADMINISTRATION [None]
  - SYNCOPE [None]
  - HYPOTENSION [None]
  - OVERDOSE [None]
